FAERS Safety Report 7901622-3 (Version None)
Quarter: 2011Q4

REPORT INFORMATION
  Report Type: 
  Country: None (occurrence: None)
  Receive Date: 20111108
  Receipt Date: 20111031
  Transmission Date: 20120403
  Serious: Yes (Other)
  Sender: FDA-Public Use
  Company Number: ZA-ROCHE-1009672

PATIENT
  Sex: Female

DRUGS (4)
  1. LUCENTIS [Suspect]
     Indication: AGE-RELATED MACULAR DEGENERATION
     Route: 050
     Dates: start: 20110301
  2. LUCENTIS [Suspect]
     Route: 050
     Dates: start: 20110713
  3. LUCENTIS [Suspect]
     Route: 050
     Dates: start: 20110929
  4. LUCENTIS [Suspect]
     Route: 050
     Dates: start: 20110808

REACTIONS (3)
  - VISUAL ACUITY REDUCED [None]
  - INAPPROPRIATE SCHEDULE OF DRUG ADMINISTRATION [None]
  - RETINAL OEDEMA [None]
